FAERS Safety Report 21766173 (Version 1)
Quarter: 2022Q4

REPORT INFORMATION
  Report Type: Spontaneous
  Country: US (occurrence: None)
  Receive Date: 20221222
  Receipt Date: 20221222
  Transmission Date: 20230113
  Serious: Yes (Other)
  Sender: FDA-Public Use
  Company Number: 2022A413456

PATIENT

DRUGS (1)
  1. PRILOSEC OTC [Suspect]
     Active Substance: OMEPRAZOLE MAGNESIUM
     Dosage: UNK
     Route: 048
     Dates: start: 2007, end: 2009

REACTIONS (8)
  - Acute kidney injury [Unknown]
  - Renal tubular necrosis [Unknown]
  - Gastric cancer [Unknown]
  - Post procedural complication [Unknown]
  - Drug dependence [Unknown]
  - Pain [Unknown]
  - Rebound effect [Unknown]
  - Hyperchlorhydria [Unknown]
